FAERS Safety Report 5206325-4 (Version None)
Quarter: 2007Q1

REPORT INFORMATION
  Report Type: 
  Country: None (occurrence: None)
  Receive Date: 20070111
  Receipt Date: 20070102
  Transmission Date: 20070707
  Serious: Yes (Hospitalization, Other)
  Sender: FDA-Public Use
  Company Number: US-PFIZER INC-2006066738

PATIENT
  Sex: Female

DRUGS (11)
  1. NEURONTIN [Suspect]
     Indication: PAIN IN EXTREMITY
     Dates: start: 20021230, end: 20031028
  2. VICODIN [Suspect]
  3. XANAX [Suspect]
  4. PAXIL [Concomitant]
  5. KLONOPIN [Concomitant]
  6. LEXAPRO [Concomitant]
  7. WELLBUTRIN [Concomitant]
  8. PROZAC [Concomitant]
  9. OXYBUTYNIN [Concomitant]
  10. TRAZODONE HCL [Concomitant]
  11. SYNTHROID [Concomitant]

REACTIONS (3)
  - DRUG INEFFECTIVE [None]
  - MULTIPLE DRUG OVERDOSE [None]
  - SUICIDE ATTEMPT [None]
